FAERS Safety Report 7054737-9 (Version None)
Quarter: 2010Q4

REPORT INFORMATION
  Report Type: 
  Country: None (occurrence: None)
  Receive Date: 20101018
  Receipt Date: 20101007
  Transmission Date: 20110411
  Serious: Yes (Hospitalization)
  Sender: FDA-Public Use
  Company Number: 2010100014

PATIENT
  Sex: Female

DRUGS (1)
  1. SOMA [Suspect]
     Indication: BACK DISORDER
     Dosage: 350 MG ORAL
     Route: 048

REACTIONS (1)
  - COMA [None]
